FAERS Safety Report 24140066 (Version 4)
Quarter: 2024Q3

REPORT INFORMATION
  Report Type: Spontaneous
  Country: US (occurrence: US)
  Receive Date: 20240726
  Receipt Date: 20240927
  Transmission Date: 20241016
  Serious: No
  Sender: BRISTOL MYERS SQUIBB
  Company Number: US-EXELIXIS-CABO-24079682

PATIENT
  Age: 54 Year
  Sex: Female

DRUGS (3)
  1. NIVOLUMAB [Suspect]
     Active Substance: NIVOLUMAB
     Indication: Renal cancer
  2. CABOMETYX [Suspect]
     Active Substance: CABOZANTINIB S-MALATE
     Indication: Renal cancer
     Route: 048
     Dates: start: 202401
  3. CABOMETYX [Suspect]
     Active Substance: CABOZANTINIB S-MALATE
     Dosage: 60 MG, 10 DAYS ON 4 DAYS OFF
     Route: 048

REACTIONS (7)
  - Ventricular dysfunction [Unknown]
  - Fatigue [Unknown]
  - Dyspnoea exertional [Unknown]
  - Lethargy [Unknown]
  - Parosmia [Unknown]
  - Food aversion [Unknown]
  - Adverse event [Unknown]

NARRATIVE: CASE EVENT DATE: 20240626
